FAERS Safety Report 15014905 (Version 4)
Quarter: 2019Q1

REPORT INFORMATION
  Report Type: Spontaneous
  Country: PT (occurrence: PT)
  Receive Date: 20180615
  Receipt Date: 20190302
  Transmission Date: 20190417
  Serious: Yes (Hospitalization, Other)
  Sender: FDA-Public Use
  Company Number: PT-ACCORD-068336

PATIENT
  Age: 67 Year
  Sex: Male

DRUGS (18)
  1. COLOSTRUM [Interacting]
     Active Substance: DIETARY SUPPLEMENT
     Indication: PRODUCT USED FOR UNKNOWN INDICATION
     Dates: end: 2012
  2. TIOTROPIUM [Concomitant]
     Active Substance: TIOTROPIUM
     Dates: end: 20120322
  3. CHLORELLA VULGARIS [Interacting]
     Active Substance: CHLORELLA VULGARIS
     Indication: PRODUCT USED FOR UNKNOWN INDICATION
     Dosage: PILLS
     Route: 048
     Dates: end: 2012
  4. CARBOPLATIN. [Suspect]
     Active Substance: CARBOPLATIN
     Indication: LUNG NEOPLASM MALIGNANT
     Dosage: BSA: 1.82 M2 WITH BI-MONTHLY FREQUENCY, 6 WEEKS
     Dates: end: 2012
  5. BUDESONIDE. [Concomitant]
     Active Substance: BUDESONIDE
     Dosage: INHALANT POWDER FLEXHALER
     Route: 055
     Dates: end: 20120322
  6. ZINC. [Concomitant]
     Active Substance: ZINC
     Route: 048
  7. SELENIUM [Concomitant]
     Active Substance: SELENIUM
     Route: 048
  8. MILK THISTLE SEED EXTRACT [Interacting]
     Active Substance: DIETARY SUPPLEMENT\HERBALS\MILK THISTLE
     Indication: PRODUCT USED FOR UNKNOWN INDICATION
     Dosage: 300MG WITH 1.5% OF SILYMARIN/3 X DAY - EQ TO 13.5 MG/DAY
     Dates: end: 2012
  9. ASCORBIC ACID. [Concomitant]
     Active Substance: ASCORBIC ACID
     Dates: end: 2012
  10. PACLITAXEL/PACLITAXEL LIPOSOME [Interacting]
     Active Substance: PACLITAXEL
     Indication: LUNG NEOPLASM MALIGNANT
     Dosage: SIX WEEKS WITH BI-MONTHLY FREQUENCY
     Dates: end: 2012
  11. METFORMIN/SITAGLIPTIN [Concomitant]
     Active Substance: METFORMIN\SITAGLIPTIN
     Route: 048
     Dates: end: 2012
  12. ATORVASTATIN [Concomitant]
     Active Substance: ATORVASTATIN
     Dates: end: 20120322
  13. CURCUMA LONGA [Interacting]
     Active Substance: HERBALS\TURMERIC
     Indication: PRODUCT USED FOR UNKNOWN INDICATION
     Route: 048
     Dates: end: 2012
  14. ALFUZOSIN [Concomitant]
     Active Substance: ALFUZOSIN
     Dates: end: 20120322
  15. FORMOTEROL [Concomitant]
     Active Substance: FORMOTEROL
     Dates: end: 20120322
  16. TOCOPHEROL [Concomitant]
     Active Substance: TOCOPHEROL
     Route: 048
     Dates: end: 2012
  17. RETINOL [Concomitant]
     Active Substance: RETINOL
     Route: 048
     Dates: end: 2012
  18. SILYBUM MARIANUM [Concomitant]
     Active Substance: DIETARY SUPPLEMENT\HERBALS\MILK THISTLE
     Dosage: 30 MINUTES BEFORE MEALS
     Route: 048
     Dates: end: 2012

REACTIONS (5)
  - Pruritus [None]
  - Skin lesion [None]
  - Hepatitis toxic [Recovered/Resolved]
  - Product contamination microbial [None]
  - Drug interaction [Unknown]
